FAERS Safety Report 9481366 (Version 2)
Quarter: 2013Q3

REPORT INFORMATION
  Report Type: Spontaneous
  Country: US (occurrence: US)
  Receive Date: 20130828
  Receipt Date: 20130828
  Transmission Date: 20140515
  Serious: Yes (Hospitalization)
  Sender: FDA-Public Use
  Company Number: US-AMGEN-KDL160912

PATIENT
  Age: 56 Year
  Sex: Male

DRUGS (6)
  1. ENBREL [Suspect]
     Indication: RHEUMATOID ARTHRITIS
     Dosage: 25 MG, QWK
     Route: 058
     Dates: start: 200108, end: 20050729
  2. METHOTREXATE [Concomitant]
     Dosage: 5 MG, QWK
     Dates: start: 1995
  3. PREDNISONE [Concomitant]
     Dosage: 10 MG, QD
  4. ACETAMINOPHEN W/OXYCODONE [Concomitant]
     Dosage: UNK UNK, UNK
  5. GABAPENTIN [Concomitant]
  6. FEXOFENADINE HYDROCHLORIDE [Concomitant]

REACTIONS (1)
  - Meningitis listeria [Unknown]
